FAERS Safety Report 5927064-8 (Version None)
Quarter: 2008Q4

REPORT INFORMATION
  Report Type: 
  Country: None (occurrence: None)
  Receive Date: 20081022
  Receipt Date: 20081015
  Transmission Date: 20090506
  Serious: Yes (Life-Threatening)
  Sender: FDA-Public Use
  Company Number: LB-B.I. PHARMACEUTICALS,INC./RIDGEFIELD-2008-DE-06106GD

PATIENT
  Age: 45 Day
  Sex: Male
  Weight: 4.2 kg

DRUGS (3)
  1. CLONIDINE [Suspect]
     Indication: SPINAL ANAESTHESIA
     Dosage: 3.5MCG
  2. BUPIVACAINE [Suspect]
     Indication: SPINAL ANAESTHESIA
     Dosage: 3.5MG
  3. DEXTROSE [Concomitant]

REACTIONS (2)
  - ANAESTHETIC COMPLICATION [None]
  - RESPIRATORY FAILURE [None]
